FAERS Safety Report 8620153-9 (Version None)
Quarter: 2012Q3

REPORT INFORMATION
  Report Type: 
  Country: None (occurrence: None)
  Receive Date: 20120824
  Receipt Date: 20120821
  Transmission Date: 20120928
  Serious: Yes (Other)
  Sender: FDA-Public Use
  Company Number: US-PFIZER INC-2012178811

PATIENT
  Age: 63 Year
  Sex: Female
  Weight: 65.76 kg

DRUGS (3)
  1. LYRICA [Suspect]
     Dosage: 100 MG, 4X/DAY
     Route: 048
  2. LYRICA [Suspect]
     Indication: NEUROPATHY PERIPHERAL
     Dosage: UNK
     Route: 048
     Dates: start: 20080801
  3. HYDROMORPHONE [Concomitant]
     Indication: PAIN
     Dosage: 4 MG, UNK

REACTIONS (5)
  - MIDDLE INSOMNIA [None]
  - PAIN IN EXTREMITY [None]
  - BREAST CANCER [None]
  - OEDEMA PERIPHERAL [None]
  - DRUG INEFFECTIVE [None]
